FAERS Safety Report 7767363-0 (Version None)
Quarter: 2011Q3

REPORT INFORMATION
  Report Type: 
  Country: None (occurrence: None)
  Receive Date: 20110922
  Receipt Date: 20100827
  Transmission Date: 20111222
  Serious: No
  Sender: FDA-Public Use
  Company Number: US-ASTRAZENECA-2007UW27694

PATIENT
  Age: 16158 Day
  Sex: Male
  Weight: 108.9 kg

DRUGS (28)
  1. SEROQUEL [Suspect]
     Dosage: 25 MG - 200 MG
     Route: 048
     Dates: start: 20030201
  2. GEODON [Concomitant]
     Dosage: 40 MG - 60 MG
     Dates: start: 20030220
  3. SEROQUEL [Suspect]
     Dosage: 25-200 MG
     Route: 048
     Dates: start: 20030417, end: 20081110
  4. PREDNISONE [Concomitant]
     Dosage: 20 MG TABLET 3 PO QAM
     Dates: start: 20040505
  5. ZOCOR [Concomitant]
     Dates: start: 20070122
  6. RISPERDAL [Concomitant]
     Indication: AFFECTIVE DISORDER
     Dosage: 1-2 MG
     Dates: start: 20020101, end: 20040113
  7. SEROQUEL [Suspect]
     Dosage: 25-200 MG
     Route: 048
     Dates: start: 20030417, end: 20081110
  8. SEROQUEL [Suspect]
     Dosage: 25 MG - 100 MG
     Route: 048
     Dates: start: 20040105
  9. RISPERDAL [Concomitant]
     Dosage: 2-3 MG
     Dates: start: 20040501
  10. SEROQUEL [Suspect]
     Indication: DEPRESSION
     Route: 048
     Dates: start: 20020801
  11. SEROQUEL [Suspect]
     Dosage: 25 MG - 100 MG
     Route: 048
     Dates: start: 20040105
  12. FLEXERIL [Concomitant]
     Dates: start: 20040816
  13. REGLAN [Concomitant]
     Dosage: 10 MG TABLET ONE QAC AND QHS
     Route: 048
     Dates: start: 20040607
  14. CLOZAPINE [Concomitant]
  15. SEROQUEL [Suspect]
     Indication: SCHIZOPHRENIA
     Route: 048
     Dates: start: 20020801
  16. SEROQUEL [Suspect]
     Dosage: 25 MG - 200 MG
     Route: 048
     Dates: start: 20030201
  17. SEROQUEL [Suspect]
     Dosage: 25 MG - 200 MG
     Route: 048
     Dates: start: 20030201
  18. SEROQUEL [Suspect]
     Dosage: 25-200 MG
     Route: 048
     Dates: start: 20030417, end: 20081110
  19. GEODON [Concomitant]
     Dates: start: 20020801
  20. SEROQUEL [Suspect]
     Indication: ANXIETY
     Route: 048
     Dates: start: 20020801
  21. SEROQUEL [Suspect]
     Indication: SLEEP DISORDER
     Route: 048
     Dates: start: 20020801
  22. SEROQUEL [Suspect]
     Dosage: 25 MG - 100 MG
     Route: 048
     Dates: start: 20040105
  23. SEROQUEL [Suspect]
     Dosage: 25 MG - 200 MG
     Route: 048
     Dates: start: 20030201
  24. SEROQUEL [Suspect]
     Dosage: 25-200 MG
     Route: 048
     Dates: start: 20030417, end: 20081110
  25. SEROQUEL [Suspect]
     Dosage: 25 MG - 100 MG
     Route: 048
     Dates: start: 20040105
  26. LORTAB [Concomitant]
     Indication: PAIN
     Dosage: 500 MG-7.5 MG TABLET 1 Q 4-6 PRN
     Dates: start: 20060707
  27. WELLBUTRIN XL/ WELLBUTRIN SR [Concomitant]
     Dosage: 150 MG - 300 MG
     Dates: start: 20040501
  28. ABILIFY [Concomitant]
     Dates: start: 20070101

REACTIONS (5)
  - TYPE 2 DIABETES MELLITUS [None]
  - DIABETIC COMPLICATION [None]
  - HYPERLIPIDAEMIA [None]
  - DIABETES MELLITUS INADEQUATE CONTROL [None]
  - BLOOD CHOLESTEROL INCREASED [None]
